FAERS Safety Report 9176094 (Version 4)
Quarter: 2013Q3

REPORT INFORMATION
  Report Type: Report from Study
  Country: US (occurrence: US)
  Receive Date: 20130320
  Receipt Date: 20130725
  Transmission Date: 20140515
  Serious: Yes (Death, Hospitalization)
  Sender: FDA-Public Use
  Company Number: US-BRISTOL-MYERS SQUIBB COMPANY-17483496

PATIENT
  Age: 64 Year
  Sex: Female

DRUGS (19)
  1. NIVOLUMAB [Suspect]
     Indication: NON-SMALL CELL LUNG CANCER
     Route: 042
     Dates: start: 20130304, end: 20130304
  2. IPILIMUMAB [Suspect]
     Indication: NON-SMALL CELL LUNG CANCER
     Route: 042
     Dates: start: 20130304, end: 20130304
  3. PENTAMIDINE [Suspect]
     Dates: start: 20130503
  4. DEXLANSOPRAZOLE [Concomitant]
     Indication: GASTROOESOPHAGEAL REFLUX DISEASE
     Route: 048
     Dates: start: 2000
  5. ZOLOFT [Concomitant]
     Indication: DEPRESSION
     Route: 048
     Dates: start: 2010
  6. XANAX [Concomitant]
     Indication: INSOMNIA
     Route: 048
     Dates: start: 2010
  7. CELEBREX [Concomitant]
     Indication: PAIN
     Route: 048
     Dates: start: 20130212
  8. DILAUDID [Concomitant]
     Indication: PAIN
     Dosage: 1 DF:2-4 MG
     Route: 048
     Dates: start: 20130212
  9. MULTIVITAMIN [Concomitant]
     Indication: VITAMIN SUPPLEMENTATION
     Dosage: 1 DF:1 CAPSULE
     Route: 048
     Dates: start: 2000
  10. VITAMIN D [Concomitant]
     Indication: VITAMIN SUPPLEMENTATION
     Route: 048
     Dates: start: 2000
  11. CALCIUM [Concomitant]
     Indication: MINERAL SUPPLEMENTATION
     Route: 048
     Dates: start: 2000
  12. COQ10 [Concomitant]
     Dosage: 1 DF:1 TAB
     Route: 048
     Dates: start: 2000
  13. DOCUSATE SODIUM\SENNOSIDES [Concomitant]
     Indication: CONSTIPATION
     Dosage: 1 DF:2 PLUS
     Route: 048
     Dates: start: 2010
  14. TYLENOL EXTRA STRENGTH [Concomitant]
     Indication: PAIN
     Route: 048
     Dates: start: 20130225
  15. VITAMIN C [Concomitant]
     Indication: VITAMIN SUPPLEMENTATION
     Route: 048
     Dates: start: 2011
  16. CRESTOR [Concomitant]
     Indication: BLOOD CHOLESTEROL INCREASED
  17. MORPHINE [Concomitant]
     Indication: FLANK PAIN
     Route: 048
     Dates: start: 20130304, end: 20130304
  18. GUAIFENESIN [Concomitant]
     Indication: RALES
     Route: 048
     Dates: start: 20130310
  19. AZITHROMYCIN [Concomitant]
     Indication: LOWER RESPIRATORY TRACT INFECTION
     Route: 048
     Dates: start: 20130302, end: 20130303

REACTIONS (3)
  - Malignant neoplasm progression [Fatal]
  - Bronchospasm [Recovered/Resolved]
  - Pneumonitis [Recovered/Resolved with Sequelae]
